FAERS Safety Report 6517749-7 (Version None)
Quarter: 2009Q4

REPORT INFORMATION
  Report Type: 
  Country: None (occurrence: None)
  Receive Date: 20091224
  Receipt Date: 20091209
  Transmission Date: 20100525
  Serious: Yes (Death, Hospitalization)
  Sender: FDA-Public Use
  Company Number: GR-BRISTOL-MYERS SQUIBB COMPANY-14897615

PATIENT
  Age: 76 Year
  Sex: Male

DRUGS (3)
  1. AMIKACIN SULFATE [Suspect]
     Indication: MYCOBACTERIUM ABSCESSUS INFECTION
     Route: 065
  2. CLARITHROMYCIN [Suspect]
     Indication: MYCOBACTERIUM ABSCESSUS INFECTION
     Route: 065
  3. IMIPENEM AND CILASTATIN SODIUM [Suspect]
     Indication: MYCOBACTERIUM ABSCESSUS INFECTION
     Route: 065

REACTIONS (1)
  - MYCOBACTERIUM ABSCESSUS INFECTION [None]
